FAERS Safety Report 12211162 (Version 1)
Quarter: 2016Q1

REPORT INFORMATION
  Report Type: Spontaneous
  Country: US (occurrence: None)
  Receive Date: 20160324
  Receipt Date: 20160324
  Transmission Date: 20160526
  Serious: No
  Sender: FDA-Public Use
  Company Number: None

PATIENT
  Age: 48 Year
  Sex: Male

DRUGS (1)
  1. IMATINIB 400MG SUN PHARMACEUTICALS [Suspect]
     Active Substance: IMATINIB
     Indication: POLYCYTHAEMIA VERA
     Route: 048
     Dates: start: 20160223

REACTIONS (3)
  - Nausea [None]
  - Swelling [None]
  - Myalgia [None]
